FAERS Safety Report 4403924-4 (Version None)
Quarter: 2004Q3

REPORT INFORMATION
  Report Type: 
  Country: None (occurrence: None)
  Receive Date: 20040721
  Receipt Date: 20030929
  Transmission Date: 20050211
  Serious: Yes (Hospitalization)
  Sender: FDA-Public Use
  Company Number: US-MERCK-0310USA00441

PATIENT
  Age: 49 Year
  Sex: Female
  Weight: 80 kg

DRUGS (4)
  1. SULAR [Concomitant]
     Indication: HYPERTENSION
     Route: 065
  2. VIOXX [Suspect]
     Indication: PAIN
     Route: 048
     Dates: start: 19990101, end: 20000101
  3. VIOXX [Suspect]
     Route: 048
  4. MICARDIS [Concomitant]
     Route: 065

REACTIONS (23)
  - ABDOMINAL DISCOMFORT [None]
  - ANAEMIA [None]
  - ARRHYTHMIA [None]
  - ASTHENIA [None]
  - BLOOD PRESSURE INCREASED [None]
  - BONE DISORDER [None]
  - CHEST PAIN [None]
  - CHRONIC FATIGUE SYNDROME [None]
  - CYST [None]
  - EMOTIONAL DISTRESS [None]
  - FATIGUE [None]
  - HYPERLIPIDAEMIA [None]
  - HYPERTENSION [None]
  - HYPOKALAEMIA [None]
  - LARGE INTESTINAL ULCER HAEMORRHAGE [None]
  - NAUSEA [None]
  - OEDEMA [None]
  - OESOPHAGEAL ULCER HAEMORRHAGE [None]
  - OSTEOARTHRITIS [None]
  - ROTATOR CUFF SYNDROME [None]
  - SPINAL DISORDER [None]
  - STOMACH DISCOMFORT [None]
  - VITAMIN B12 DEFICIENCY [None]
